FAERS Safety Report 12263941 (Version 2)
Quarter: 2016Q2

REPORT INFORMATION
  Report Type: Spontaneous
  Country: DE (occurrence: DE)
  Receive Date: 20160413
  Receipt Date: 20160527
  Transmission Date: 20160815
  Serious: Yes (Other)
  Sender: FDA-Public Use
  Company Number: PHHY2016DE047057

PATIENT
  Sex: Male

DRUGS (1)
  1. VOLTAREN RESINAT [Suspect]
     Active Substance: DICLOFENAC
     Indication: PRODUCT USED FOR UNKNOWN INDICATION
     Dosage: 75 MG, QD
     Route: 065
     Dates: start: 2013

REACTIONS (5)
  - Drug ineffective [Unknown]
  - Dizziness [Unknown]
  - Expired product administered [Unknown]
  - Myocardial infarction [Unknown]
  - Abdominal pain upper [Unknown]
